FAERS Safety Report 8594973-3 (Version None)
Quarter: 2012Q3

REPORT INFORMATION
  Report Type: 
  Country: None (occurrence: None)
  Receive Date: 20120815
  Receipt Date: 20120813
  Transmission Date: 20120928
  Serious: Yes (Death, Hospitalization)
  Sender: FDA-Public Use
  Company Number: PHHY2012IN070188

PATIENT
  Age: 63 Year
  Sex: Male

DRUGS (2)
  1. LESCOL XL [Concomitant]
     Indication: CARDIAC DISORDER
     Dosage: 80 MG, UNK
  2. DIOVAN [Suspect]
     Indication: HYPERTENSION
     Dosage: 160 MG, UNK
     Dates: start: 20100101

REACTIONS (3)
  - MULTI-ORGAN FAILURE [None]
  - LUNG INFECTION [None]
  - KIDNEY INFECTION [None]
